FAERS Safety Report 23868418 (Version 1)
Quarter: 2024Q2

REPORT INFORMATION
  Report Type: Spontaneous
  Country: IN (occurrence: IN)
  Receive Date: 20240517
  Receipt Date: 20240517
  Transmission Date: 20240716
  Serious: Yes (Hospitalization, Other)
  Sender: FDA-Public Use
  Company Number: IN-TORRENT-00003520

PATIENT
  Age: 74 Year
  Sex: Female
  Weight: 55 kg

DRUGS (20)
  1. VALPROATE SODIUM [Suspect]
     Active Substance: VALPROATE SODIUM
     Indication: Product used for unknown indication
     Dosage: 500 MG B.I.D
     Route: 065
  2. CARBIDOPA\LEVODOPA [Suspect]
     Active Substance: CARBIDOPA\LEVODOPA
     Indication: Tremor
     Dosage: 250 MG T.I.D
     Route: 065
  3. PRAMIPEXOLE [Suspect]
     Active Substance: PRAMIPEXOLE\PRAMIPEXOLE DIHYDROCHLORIDE
     Indication: Tremor
     Dosage: 0.5 MG O.D
     Route: 065
  4. CHLORDIAZEPOXIDE\CLIDINIUM [Suspect]
     Active Substance: CHLORDIAZEPOXIDE\CLIDINIUM
     Indication: Product used for unknown indication
     Dosage: 2.5/5 MG T.I.D
     Route: 065
  5. LEVOSULPIRIDE\RABEPRAZOLE SODIUM [Suspect]
     Active Substance: LEVOSULPIRIDE\RABEPRAZOLE SODIUM
     Indication: Product used for unknown indication
     Dosage: 75/20 MG O.D
     Route: 065
  6. ATORVASTATIN [Concomitant]
     Active Substance: ATORVASTATIN
     Indication: Product used for unknown indication
     Dosage: 80 MG O.D
     Route: 065
  7. Atorvastatin/clopidogrel [Concomitant]
     Indication: Chest pain
     Dosage: 10/75 MG O.D
     Route: 065
  8. BETAHISTINE [Concomitant]
     Active Substance: BETAHISTINE
     Indication: Vertigo
     Dosage: 16 MG T.I.D
     Route: 065
  9. BETHANECHOL [Concomitant]
     Active Substance: BETHANECHOL
     Indication: Urinary retention
     Dosage: 25 MG T.I.D
     Route: 065
  10. Escitalopram/ Etizolam [Concomitant]
     Indication: Product used for unknown indication
     Dosage: 10/0.5 MG O.D
     Route: 065
  11. fluticasone/ formoterol [Concomitant]
     Indication: Product used for unknown indication
     Dosage: AS NEEDED BASIS (INHALER)
     Route: 055
  12. GLICLAZIDE [Concomitant]
     Active Substance: GLICLAZIDE
     Indication: Type 2 diabetes mellitus
     Dosage: 60 MG O.D
     Route: 065
  13. INSULIN GLARGINE [Concomitant]
     Active Substance: INSULIN GLARGINE
     Indication: Type 2 diabetes mellitus
     Dosage: VARYING DOSES
     Route: 065
  14. METFORMIN [Concomitant]
     Active Substance: METFORMIN HYDROCHLORIDE
     Indication: Diabetes mellitus
     Dosage: 500 MG  TAB T.I.D
     Route: 065
  15. Montelukast/acebrophylline [Concomitant]
     Indication: Product used for unknown indication
     Dosage: 10/200 MG O.D
     Route: 065
  16. ACETAMINOPHEN [Concomitant]
     Active Substance: ACETAMINOPHEN
     Indication: Back pain
     Dosage: 650 MG B.I.D
     Route: 065
  17. SILODOSIN [Concomitant]
     Active Substance: SILODOSIN
     Indication: Urinary retention
     Dosage: 8 MG O.D
     Route: 065
  18. SPIRONOLACTONE [Concomitant]
     Active Substance: SPIRONOLACTONE
     Indication: Peripheral swelling
     Dosage: 50 MG O.D
     Route: 065
  19. VILDAGLIPTIN [Concomitant]
     Active Substance: VILDAGLIPTIN
     Indication: Diabetes mellitus
     Dosage: 50 MG O.D
     Route: 065
  20. VITAMIN D [Concomitant]
     Active Substance: VITAMIN D NOS
     Indication: Product used for unknown indication
     Dosage: 60000 UNITS ON WEEKLY BASIS
     Route: 065

REACTIONS (8)
  - Parkinsonism [Recovered/Resolved]
  - Hyponatraemia [Recovered/Resolved]
  - Altered state of consciousness [Recovered/Resolved]
  - Urinary retention [Recovered/Resolved]
  - Inappropriate antidiuretic hormone secretion [Recovering/Resolving]
  - Constipation [Recovering/Resolving]
  - Nausea [Recovering/Resolving]
  - Decreased appetite [Recovering/Resolving]
